FAERS Safety Report 18868701 (Version 1)
Quarter: 2021Q1

REPORT INFORMATION
  Report Type: Spontaneous
  Country: US (occurrence: US)
  Receive Date: 20210209
  Receipt Date: 20210209
  Transmission Date: 20210420
  Serious: No
  Sender: FDA-Public Use
  Company Number: US-ASTRAZENECA-2021A034802

PATIENT
  Age: 53 Year
  Sex: Male

DRUGS (1)
  1. NEXIUM 24HR [Suspect]
     Active Substance: ESOMEPRAZOLE MAGNESIUM
     Indication: DYSPEPSIA
     Dosage: 1, EVERY DAY
     Route: 048

REACTIONS (4)
  - Cough [Unknown]
  - Haemoptysis [Unknown]
  - Product use issue [Unknown]
  - Diarrhoea [Unknown]
